FAERS Safety Report 6075629-8 (Version None)
Quarter: 2009Q1

REPORT INFORMATION
  Report Type: 
  Country: None (occurrence: None)
  Receive Date: 20090212
  Receipt Date: 20090128
  Transmission Date: 20090719
  Serious: Yes (Disabling)
  Sender: FDA-Public Use
  Company Number: PFIZER INC-2008019004

PATIENT

DRUGS (3)
  1. CAMPTOSAR [Suspect]
     Indication: GASTRIC CANCER
     Dosage: 40 MG/BODY (25.5 MG/M2)
     Route: 041
     Dates: start: 20040707, end: 20040721
  2. TS-1 [Suspect]
     Indication: GASTRIC CANCER
     Dosage: 80 MG/DAY (40 MG)
     Route: 048
     Dates: start: 20040630, end: 20040713
  3. RANDA [Concomitant]
     Indication: GASTRIC CANCER
     Dosage: 25 MG/BODY (15.9 MG/M2)
     Route: 041
     Dates: start: 20040630, end: 20040714

REACTIONS (1)
  - GASTRIC PERFORATION [None]
